FAERS Safety Report 11492865 (Version 1)
Quarter: 2015Q3

REPORT INFORMATION
  Report Type: Spontaneous
  Country: US (occurrence: US)
  Receive Date: 20150911
  Receipt Date: 20150911
  Transmission Date: 20151125
  Serious: Yes (Other)
  Sender: FDA-Public Use
  Company Number: US-ROCHE-1632242

PATIENT
  Sex: Male

DRUGS (4)
  1. BETAGAN [Concomitant]
     Active Substance: LEVOBUNOLOL HYDROCHLORIDE
     Route: 065
  2. SYMBICORT [Concomitant]
     Active Substance: BUDESONIDE\FORMOTEROL FUMARATE DIHYDRATE
     Indication: CHRONIC OBSTRUCTIVE PULMONARY DISEASE
  3. LUCENTIS [Suspect]
     Active Substance: RANIBIZUMAB
     Route: 065
  4. LUCENTIS [Suspect]
     Active Substance: RANIBIZUMAB
     Indication: NEOVASCULAR AGE-RELATED MACULAR DEGENERATION
     Dosage: BOTH EYES; STARTED 5 YEARS AGO
     Route: 065

REACTIONS (3)
  - Blindness [Not Recovered/Not Resolved]
  - Glaucoma [Unknown]
  - Visual acuity reduced [Not Recovered/Not Resolved]
